FAERS Safety Report 8196226-4 (Version None)
Quarter: 2012Q1

REPORT INFORMATION
  Report Type: 
  Country: None (occurrence: None)
  Receive Date: 20120306
  Receipt Date: 20120224
  Transmission Date: 20120608
  Serious: Yes (Disabling)
  Sender: FDA-Public Use
  Company Number: 2012SP010707

PATIENT
  Age: 66 Year

DRUGS (4)
  1. TICE BCG [Suspect]
     Indication: BLADDER CANCER
     Dosage: INVES
     Route: 043
     Dates: start: 20110906, end: 20120117
  2. DIGOXIN [Concomitant]
  3. METHOTREXATE [Concomitant]
  4. LEVOTHYROXINE SODIUM [Concomitant]

REACTIONS (2)
  - RHEUMATOID ARTHRITIS [None]
  - CONDITION AGGRAVATED [None]
